FAERS Safety Report 8105633-7 (Version None)
Quarter: 2012Q1

REPORT INFORMATION
  Report Type: 
  Country: None (occurrence: None)
  Receive Date: 20120201
  Receipt Date: 20120120
  Transmission Date: 20120608
  Serious: Yes (Other)
  Sender: FDA-Public Use
  Company Number: FR-ROCHE-GNE320391

PATIENT
  Sex: Female

DRUGS (7)
  1. LUCENTIS [Suspect]
     Route: 050
     Dates: start: 20111219
  2. MACUGEN [Concomitant]
     Indication: AGE-RELATED MACULAR DEGENERATION
     Route: 050
     Dates: start: 20091109
  3. LUCENTIS [Suspect]
     Indication: PRODUCT USED FOR UNKNOWN INDICATION
     Route: 050
     Dates: start: 20100325
  4. MACUGEN [Concomitant]
     Route: 050
     Dates: start: 20100109
  5. LUCENTIS [Suspect]
     Route: 050
     Dates: start: 20120117
  6. LUCENTIS [Suspect]
     Route: 050
     Dates: start: 20110219
  7. LUCENTIS [Suspect]
     Route: 050
     Dates: start: 20110319

REACTIONS (5)
  - VISUAL ACUITY REDUCED [None]
  - DETACHMENT OF RETINAL PIGMENT EPITHELIUM [None]
  - INJECTION SITE PAIN [None]
  - LENS DISORDER [None]
  - RETINAL DEPIGMENTATION [None]
